FAERS Safety Report 9183629 (Version 1)
Quarter: 2013Q1

REPORT INFORMATION
  Report Type: Spontaneous
  Country: US (occurrence: US)
  Receive Date: 20130322
  Receipt Date: 20130322
  Transmission Date: 20140127
  Serious: No
  Sender: FDA-Public Use
  Company Number: US-BRISTOL-MYERS SQUIBB COMPANY-16570525

PATIENT
  Age: 76 Year
  Sex: Female
  Weight: 68.93 kg

DRUGS (11)
  1. ERBITUX [Suspect]
     Indication: COLON CANCER
     Dosage: NO OF TREATMENTS:5,5TH TREATMENT ON 01MAY12
     Route: 042
     Dates: start: 201203
  2. IRINOTECAN HCL [Concomitant]
  3. ASA [Concomitant]
  4. ENALAPRIL [Concomitant]
  5. GLIMEPIRIDE [Concomitant]
  6. LOMOTIL [Concomitant]
  7. IMMODIUM [Concomitant]
  8. LOPRESSOR [Concomitant]
  9. COMPAZINE [Concomitant]
  10. RESTORIL [Concomitant]
  11. ARIXTRA [Concomitant]

REACTIONS (3)
  - Rash [Recovering/Resolving]
  - Hair growth abnormal [Unknown]
  - Diarrhoea [Recovering/Resolving]
